FAERS Safety Report 4286975-2 (Version None)
Quarter: 2004Q1

REPORT INFORMATION
  Report Type: 
  Country: None (occurrence: None)
  Receive Date: 20040204
  Receipt Date: 20040122
  Transmission Date: 20041129
  Serious: Yes (Life-Threatening)
  Sender: FDA-Public Use
  Company Number: JP-JNJFOC-20030904255

PATIENT
  Age: 56 Year
  Sex: Female
  Weight: 46 kg

DRUGS (12)
  1. REMICADE [Suspect]
     Indication: RHEUMATOID ARTHRITIS
     Dosage: 3MG/KG, 1 IN 1 AS NECESSARY, INTRAVENOUS DRIP
     Route: 041
     Dates: start: 20030902, end: 20030902
  2. PREDNISOLONE [Suspect]
     Indication: RHEUMATOID ARTHRITIS
     Dosage: 5 MG, IN 1 DAY, ORAL
     Route: 048
     Dates: start: 19940101
  3. LIMETHASON (ALL OTHER THERAPEUTIC PRODUCTS) INJECTION [Suspect]
     Indication: RHEUMATOID ARTHRITIS
     Dates: start: 19950101, end: 20030830
  4. RHEUMATREX [Suspect]
     Indication: RHEUMATOID ARTHRITIS
     Dosage: 4 MG, IN 1 WEEK, ORAL
     Route: 048
     Dates: start: 20030802
  5. METHOTREXATE [Suspect]
     Indication: RHEUMATOID ARTHRITIS
     Dosage: 2.5 MG, IN 1 WEEK, ORAL
     Route: 048
     Dates: start: 20030802, end: 20030913
  6. VOLTAREN SR (CAPSULES) DICLOFENAC SODIUM [Concomitant]
  7. VOLTAREN (GEL) DICLOFENAC SODIUM [Concomitant]
  8. THIOLA (TIOPRONIN) TABLETS [Concomitant]
  9. FOLIAMIN (FOLIC ACID) TABLETS [Concomitant]
  10. APLACE (TROXIPIDE) TABLETS [Concomitant]
  11. GASTROM (ECABET MONOSODIUM) GRANULES [Concomitant]
  12. PARIET (RABEPRAZOLE) TABLETS [Concomitant]

REACTIONS (3)
  - BRONCHOPNEUMONIA [None]
  - EYE DISORDER [None]
  - HAEMOGLOBIN DECREASED [None]
